FAERS Safety Report 11436328 (Version 1)
Quarter: 2015Q3

REPORT INFORMATION
  Report Type: Spontaneous
  Country: US (occurrence: US)
  Receive Date: 20150821
  Receipt Date: 20150821
  Transmission Date: 20151125
  Serious: No
  Sender: FDA-Public Use
  Company Number: US-ELI_LILLY_AND_COMPANY-US201405000108

PATIENT
  Sex: Male

DRUGS (6)
  1. CIALIS [Suspect]
     Active Substance: TADALAFIL
     Dosage: 20 MG, PRN
     Route: 065
  2. CIALIS [Suspect]
     Active Substance: TADALAFIL
     Indication: ERECTILE DYSFUNCTION
     Dosage: 10 MG, PRN
     Route: 065
     Dates: start: 2008
  3. SIMVACARD [Concomitant]
     Dosage: 20 MG, UNKNOWN
  4. CIALIS [Suspect]
     Active Substance: TADALAFIL
     Dosage: 5 MG, QD
     Route: 065
  5. LISINOPRIL. [Concomitant]
     Active Substance: LISINOPRIL
     Dosage: 10 MG, UNKNOWN
     Route: 065
  6. METFORMIN [Concomitant]
     Active Substance: METFORMIN HYDROCHLORIDE

REACTIONS (3)
  - Flushing [Unknown]
  - Nasal congestion [Unknown]
  - Off label use [Unknown]
